FAERS Safety Report 17617930 (Version 1)
Quarter: 2020Q2

REPORT INFORMATION
  Report Type: Spontaneous
  Country: US (occurrence: US)
  Receive Date: 20200402
  Receipt Date: 20200402
  Transmission Date: 20200713
  Serious: No
  Sender: FDA-Public Use
  Company Number: US-ROCHE-2298491

PATIENT
  Age: 87 Year
  Sex: Female
  Weight: 72.64 kg

DRUGS (2)
  1. ERIVEDGE [Suspect]
     Active Substance: VISMODEGIB
     Indication: BASAL CELL CARCINOMA
     Route: 048
     Dates: start: 20190201, end: 20190325
  2. ERIVEDGE [Suspect]
     Active Substance: VISMODEGIB
     Route: 065

REACTIONS (4)
  - Ageusia [Not Recovered/Not Resolved]
  - Muscle spasms [Unknown]
  - Constipation [Recovered/Resolved]
  - Weight decreased [Unknown]

NARRATIVE: CASE EVENT DATE: 201902
